FAERS Safety Report 10744946 (Version 2)
Quarter: 2015Q1

REPORT INFORMATION
  Report Type: Spontaneous
  Country: GB (occurrence: GB)
  Receive Date: 20150128
  Receipt Date: 20150212
  Transmission Date: 20150721
  Serious: Yes (Other)
  Sender: FDA-Public Use
  Company Number: GB-JNJFOC-20150112220

PATIENT
  Age: 11 Year
  Sex: Male

DRUGS (1)
  1. CALPOL SIXPLUS FASTMELTS [Suspect]
     Active Substance: ACETAMINOPHEN
     Indication: INFLUENZA
     Route: 065

REACTIONS (1)
  - Vomiting [Recovered/Resolved]
